FAERS Safety Report 24544735 (Version 1)
Quarter: 2024Q4

REPORT INFORMATION
  Report Type: Spontaneous
  Country: US (occurrence: None)
  Receive Date: 20241023
  Receipt Date: 20241023
  Transmission Date: 20250114
  Serious: Yes (Death)
  Sender: Public
  Company Number: None

PATIENT
  Age: 48 Year
  Sex: Male

DRUGS (6)
  1. ENTECAVIR [Suspect]
     Active Substance: ENTECAVIR
     Indication: Hepatitis B
     Dosage: FREQUENCY : DAILY;?
     Route: 048
     Dates: start: 20230521
  2. BACTRIM DS [Concomitant]
     Active Substance: SULFAMETHOXAZOLE\TRIMETHOPRIM
  3. OMEPRAZOLE [Concomitant]
     Active Substance: OMEPRAZOLE
  4. PREDNISONE [Concomitant]
     Active Substance: PREDNISONE
  5. HUMALOG KWIKPEN [Concomitant]
     Active Substance: INSULIN LISPRO
  6. TRESIBA FLEXTOUCH PEN (U-100) [Concomitant]

REACTIONS (1)
  - Death [None]

NARRATIVE: CASE EVENT DATE: 20241012
